FAERS Safety Report 16923997 (Version 1)
Quarter: 2019Q4

REPORT INFORMATION
  Report Type: Spontaneous
  Country: US (occurrence: US)
  Receive Date: 20191016
  Receipt Date: 20191016
  Transmission Date: 20200122
  Serious: Yes (Hospitalization)
  Sender: FDA-Public Use
  Company Number: US-HIKMA PHARMACEUTICALS USA INC.-US-H14001-19-05268

PATIENT
  Age: 63 Year
  Sex: Female

DRUGS (5)
  1. VALPROATE [Suspect]
     Active Substance: VALPROIC ACID
     Indication: MIGRAINE
     Dosage: SHE RECEIVED ONE DOSE ONLY.
     Route: 065
  2. KETAMINE [Suspect]
     Active Substance: KETAMINE
     Indication: MIGRAINE
     Dosage: UP TO 45 MG/HR
     Route: 042
  3. METHYLPREDNISONE [Concomitant]
     Active Substance: METHYLPREDNISOLONE
     Indication: MIGRAINE
     Route: 065
  4. DIHYDROERGOTAMINE [Suspect]
     Active Substance: DIHYDROERGOTAMINE
     Indication: MIGRAINE
     Dosage: SHE RECEIVED 4 DOSES
     Route: 042
  5. PROMETHAZINE [Suspect]
     Active Substance: PROMETHAZINE HYDROCHLORIDE
     Indication: MIGRAINE
     Route: 065

REACTIONS (5)
  - Posterior reversible encephalopathy syndrome [Recovered/Resolved]
  - Gait disturbance [Recovered/Resolved]
  - Ataxia [Recovered/Resolved]
  - Visual acuity reduced [Recovered/Resolved]
  - Reversible cerebral vasoconstriction syndrome [Recovered/Resolved]
